FAERS Safety Report 5800324-7 (Version None)
Quarter: 2008Q3

REPORT INFORMATION
  Report Type: 
  Country: None (occurrence: None)
  Receive Date: 20080702
  Receipt Date: 20080702
  Transmission Date: 20090109
  Serious: Yes (Death)
  Sender: FDA-Public Use
  Company Number: None

PATIENT
  Age: 55 Year
  Sex: Male

DRUGS (1)
  1. DIGITEK 0.25 MG [Suspect]
     Dosage: 1 PO DAILY  (DURATION: OVER 1 YEAR)
     Route: 048

REACTIONS (1)
  - DEATH [None]
